FAERS Safety Report 5757349-X (Version None)
Quarter: 2008Q2

REPORT INFORMATION
  Report Type: 
  Country: None (occurrence: None)
  Receive Date: 20080603
  Receipt Date: 20080522
  Transmission Date: 20081010
  Serious: Yes (Other)
  Sender: FDA-Public Use
  Company Number: US-BAYER-200811985BCC

PATIENT
  Age: 28 Year
  Sex: Female
  Weight: 54 kg

DRUGS (3)
  1. ASPIRIN [Suspect]
     Indication: PAIN
     Route: 048
  2. ASPIRIN [Suspect]
     Indication: CARDIOVASCULAR EVENT PROPHYLAXIS
     Dosage: TOTAL DAILY DOSE: 81 MG  UNIT DOSE: 81 MG
     Route: 048
     Dates: start: 20070601
  3. ALLEGRA [Concomitant]

REACTIONS (12)
  - ARTERIAL OCCLUSIVE DISEASE [None]
  - ARTHRITIS [None]
  - AUTOMATIC BLADDER [None]
  - BLOOD CHOLESTEROL INCREASED [None]
  - BREAST CANCER [None]
  - DEPRESSION [None]
  - DYSPEPSIA [None]
  - FACIAL PALSY [None]
  - HYPERTENSION [None]
  - IRRITABLE BOWEL SYNDROME [None]
  - SKIN CANCER [None]
  - TINNITUS [None]
